FAERS Safety Report 6138101-2 (Version None)
Quarter: 2009Q1

REPORT INFORMATION
  Report Type: 
  Country: None (occurrence: None)
  Receive Date: 20090327
  Receipt Date: 20090323
  Transmission Date: 20090719
  Serious: Yes (Death)
  Sender: FDA-Public Use
  Company Number: JHP200900085

PATIENT
  Age: 14 Month
  Sex: Male

DRUGS (5)
  1. COLY-MYCIN M PARENTERAL (COLISTIN) INJECTION, 150MG [Suspect]
     Indication: BACTERAEMIA
     Dosage: 5 MG/KG/DAY (IN 3 EQUAL DOSES), INTRAVENOUS
     Route: 042
  2. PIPERACILLIN W/TAZOBACTAM (PIPERACILLIN, TAZOBACTAM) [Concomitant]
  3. CIPROFLOXACIN [Concomitant]
  4. AMIKACIN [Concomitant]
  5. CILASTATIN SODIUM W/IMIPENEM (CILASTATIN SODIUM, IMIPENEM) [Concomitant]

REACTIONS (5)
  - BLOOD CULTURE POSITIVE [None]
  - CANDIDIASIS [None]
  - CONVULSION [None]
  - HYPOXIA [None]
  - NEUROLOGICAL DECOMPENSATION [None]
